FAERS Safety Report 21367489 (Version 1)
Quarter: 2022Q3

REPORT INFORMATION
  Report Type: Spontaneous
  Country: FR (occurrence: FR)
  Receive Date: 20220923
  Receipt Date: 20220923
  Transmission Date: 20221027
  Serious: Yes (Hospitalization)
  Sender: FDA-Public Use
  Company Number: None

PATIENT
  Age: 64 Year
  Sex: Female
  Weight: 49 kg

DRUGS (2)
  1. LEVOFLOXACIN [Suspect]
     Active Substance: LEVOFLOXACIN
     Indication: Osteomyelitis
     Dosage: UNIT DOSE: 500 MG, FREQUENCY TIME- 1 DAY, DURATION-28 DAYS
     Dates: start: 20220321, end: 20220418
  2. CLINDAMYCIN HYDROCHLORIDE [Suspect]
     Active Substance: CLINDAMYCIN HYDROCHLORIDE
     Indication: Osteomyelitis
     Dosage: UNIT DOSE: 1800 MG, FREQUENCY TIME- 1 DAY, DURATION-13 DAYS
     Dates: start: 20220405, end: 20220418

REACTIONS (1)
  - Rash erythematous [Recovered/Resolved]

NARRATIVE: CASE EVENT DATE: 20220409
